FAERS Safety Report 12082968 (Version 2)
Quarter: 2016Q1

REPORT INFORMATION
  Report Type: Spontaneous
  Country: US (occurrence: US)
  Receive Date: 20160217
  Receipt Date: 20160309
  Transmission Date: 20160526
  Serious: No
  Sender: FDA-Public Use
  Company Number: US-PFIZER INC-2016070663

PATIENT
  Age: 82 Year
  Sex: Male
  Weight: 104.3 kg

DRUGS (7)
  1. TYLENOL PM [Concomitant]
     Active Substance: ACETAMINOPHEN\DIPHENHYDRAMINE
     Indication: INSOMNIA
     Dosage: 2500MG BY MOUTH AT NIGHT
     Route: 048
  2. PIOGLITAZONE. [Concomitant]
     Active Substance: PIOGLITAZONE
     Dosage: 30 MG, 1X/DAY
     Route: 048
  3. LYRICA [Suspect]
     Active Substance: PREGABALIN
     Indication: DIABETES MELLITUS
     Dosage: 50 MG, 2X/DAY
     Route: 048
  4. LYRICA [Suspect]
     Active Substance: PREGABALIN
     Indication: PARAESTHESIA
  5. DESLORATADINE. [Concomitant]
     Active Substance: DESLORATADINE
     Indication: HYPERSENSITIVITY
  6. SIMVASTATIN. [Concomitant]
     Active Substance: SIMVASTATIN
     Indication: BLOOD CHOLESTEROL ABNORMAL
     Dosage: 40MG TABLET ONCE A DAY AT BEDTIME
  7. DESLORATADINE. [Concomitant]
     Active Substance: DESLORATADINE
     Indication: RHINORRHOEA
     Dosage: 5MG TABLET EVERY DAY
     Route: 048

REACTIONS (7)
  - Blood cholesterol increased [Unknown]
  - Blood triglycerides increased [Recovering/Resolving]
  - Dysphagia [Recovered/Resolved]
  - Intentional product use issue [Unknown]
  - Sinus disorder [Unknown]
  - Product difficult to swallow [Unknown]
  - Foreign body [Recovered/Resolved]
